FAERS Safety Report 5406135-9 (Version None)
Quarter: 2007Q3

REPORT INFORMATION
  Report Type: 
  Country: None (occurrence: None)
  Receive Date: 20070802
  Receipt Date: 20070724
  Transmission Date: 20080115
  Serious: Yes (Death, Hospitalization)
  Sender: FDA-Public Use
  Company Number: 2007-03478

PATIENT
  Age: 49 Year
  Sex: Male

DRUGS (4)
  1. DEXAMETHASONE SODIUM PHOSPHATE [Suspect]
     Indication: MENINGITIS PNEUMOCOCCAL
     Dosage: 10 MG, Q6H, 4 DAYS
     Dates: start: 20060101, end: 20060101
  2. CEFOTAXIME (CEFOTAXIME) INJECTION [Concomitant]
  3. VANCOMYCIN [Concomitant]
  4. AMOXICILLIN [Concomitant]

REACTIONS (3)
  - CEREBRAL ARTERITIS [None]
  - REBOUND EFFECT [None]
  - VASCULITIS [None]
